FAERS Safety Report 8371962 (Version 2)
Quarter: 2013Q1

REPORT INFORMATION
  Report Type: Spontaneous
  Country: PR (occurrence: PR)
  Receive Date: 20120129
  Receipt Date: 20130130
  Transmission Date: 20140127
  Serious: No
  Sender: FDA-Public Use
  Company Number: PR-ABBOTT-11P-131-0874324-00

PATIENT
  Age: 77 Year
  Sex: Female
  Weight: 77.18 kg

DRUGS (8)
  1. HUMIRA 40 MG/ 0.8 ML PRE-FILLED SYRINGE [Suspect]
     Indication: RHEUMATOID ARTHRITIS
     Route: 058
  2. METHOTREXATE [Concomitant]
     Indication: RHEUMATOID ARTHRITIS
     Route: 058
  3. ULTRACET [Concomitant]
     Indication: RHEUMATOID ARTHRITIS
     Route: 048
  4. RELAFEN [Concomitant]
     Indication: RHEUMATOID ARTHRITIS
     Route: 048
  5. CARDIZEM [Concomitant]
     Indication: HYPERTENSION
     Route: 048
  6. CATAPRES [Concomitant]
     Indication: HYPERTENSION
     Route: 048
  7. HYZAAR [Concomitant]
     Indication: HYPERTENSION
     Dosage: 100/25
     Route: 048
  8. SYNTHROID [Concomitant]
     Indication: HYPERTHYROIDISM
     Route: 048

REACTIONS (3)
  - Hyperthyroidism [Recovering/Resolving]
  - Injection site pain [Recovered/Resolved]
  - Injection site rash [Recovered/Resolved]
